FAERS Safety Report 4349041-3 (Version None)
Quarter: 2004Q2

REPORT INFORMATION
  Report Type: 
  Country: None (occurrence: None)
  Receive Date: 20040420
  Receipt Date: 20040302
  Transmission Date: 20050107
  Serious: Yes (Other)
  Sender: FDA-Public Use
  Company Number: 200410262BCA

PATIENT
  Sex: Female

DRUGS (1)
  1. FLEBOGAMMA [Suspect]
     Indication: IDIOPATHIC THROMBOCYTOPENIC PURPURA
     Dosage: 240 G, BIW, INTRAVENOUS
     Route: 042

REACTIONS (5)
  - HEADACHE [None]
  - HEPATITIS C [None]
  - NAUSEA [None]
  - NECK PAIN [None]
  - PAIN IN EXTREMITY [None]
